FAERS Safety Report 17821865 (Version 11)
Quarter: 2021Q2

REPORT INFORMATION
  Report Type: Report from Study
  Country: CA (occurrence: CA)
  Receive Date: 20200525
  Receipt Date: 20210614
  Transmission Date: 20210716
  Serious: Yes (Hospitalization, Other)
  Sender: FDA-Public Use
  Company Number: CA-TAKEDA-2020TUS023050

PATIENT
  Age: 59 Year
  Sex: Female

DRUGS (8)
  1. STELARA [Concomitant]
     Active Substance: USTEKINUMAB
     Dosage: UNK
  2. VEDOLIZUMAB [Suspect]
     Active Substance: VEDOLIZUMAB
     Indication: CROHN^S DISEASE
     Dosage: 300 MILLIGRAM
     Route: 042
     Dates: start: 20200127
  3. VEDOLIZUMAB [Suspect]
     Active Substance: VEDOLIZUMAB
     Dosage: 300 MILLIGRAM, Q4WEEKS
     Route: 042
  4. VEDOLIZUMAB [Suspect]
     Active Substance: VEDOLIZUMAB
     Dosage: 300 MILLIGRAM, Q4WEEKS
     Route: 042
  5. VEDOLIZUMAB [Suspect]
     Active Substance: VEDOLIZUMAB
     Dosage: 300 MILLIGRAM, Q4WEEKS
     Route: 042
  6. VEDOLIZUMAB [Suspect]
     Active Substance: VEDOLIZUMAB
     Dosage: 300 MILLIGRAM, Q4WEEKS
     Route: 042
     Dates: start: 20200610
  7. BUDESONIDE. [Concomitant]
     Active Substance: BUDESONIDE
     Dosage: UNK
  8. VEDOLIZUMAB [Suspect]
     Active Substance: VEDOLIZUMAB
     Dosage: 300 MILLIGRAM, Q4WEEKS
     Route: 042

REACTIONS (18)
  - Vascular device occlusion [Not Recovered/Not Resolved]
  - Feeling abnormal [Unknown]
  - Stoma site irritation [Not Recovered/Not Resolved]
  - Back pain [Recovering/Resolving]
  - Memory impairment [Unknown]
  - Stoma site pain [Unknown]
  - Pain in extremity [Unknown]
  - Rash papular [Unknown]
  - Nausea [Not Recovered/Not Resolved]
  - Arthralgia [Unknown]
  - Stoma site induration [Recovering/Resolving]
  - Diarrhoea [Unknown]
  - Pyoderma gangrenosum [Unknown]
  - Stomal hernia [Unknown]
  - Abnormal faeces [Unknown]
  - Rash pruritic [Unknown]
  - Off label use [Unknown]
  - Poor venous access [Unknown]

NARRATIVE: CASE EVENT DATE: 20200610
